FAERS Safety Report 11381854 (Version 1)
Quarter: 2015Q3

REPORT INFORMATION
  Report Type: Report from Study
  Country: US (occurrence: US)
  Receive Date: 20150814
  Receipt Date: 20150814
  Transmission Date: 20151125
  Serious: Yes (Death)
  Sender: FDA-Public Use
  Company Number: US-ASTELLAS-2015US018880

PATIENT
  Age: 58 Year
  Sex: Female

DRUGS (2)
  1. ERLOTINIB [Suspect]
     Active Substance: ERLOTINIB
     Indication: LUNG NEOPLASM MALIGNANT
     Route: 048
  2. ERLOTINIB [Suspect]
     Active Substance: ERLOTINIB
     Dosage: UNK, EVERY OTHER DAY
     Route: 065

REACTIONS (3)
  - Death [Fatal]
  - Bedridden [Unknown]
  - Asthenia [Unknown]

NARRATIVE: CASE EVENT DATE: 20060821
